FAERS Safety Report 15537249 (Version 1)
Quarter: 2018Q4

REPORT INFORMATION
  Report Type: Spontaneous
  Country: US (occurrence: US)
  Receive Date: 20181022
  Receipt Date: 20181022
  Transmission Date: 20190205
  Serious: Yes (Hospitalization, Other)
  Sender: FDA-Public Use
  Company Number: US-NOVOPROD-627403

PATIENT
  Sex: Female

DRUGS (1)
  1. NOVOLOG [Suspect]
     Active Substance: INSULIN ASPART
     Indication: PRODUCT USED FOR UNKNOWN INDICATION
     Dosage: UNK
     Route: 065
     Dates: start: 201808

REACTIONS (7)
  - Intentional product use issue [Unknown]
  - Chest pain [Unknown]
  - Confusional state [Unknown]
  - Vasodilatation [Unknown]
  - Disorientation [Unknown]
  - Headache [Unknown]
  - Haematoma [Unknown]

NARRATIVE: CASE EVENT DATE: 201808
